FAERS Safety Report 10311937 (Version 15)
Quarter: 2016Q1

REPORT INFORMATION
  Report Type: Report from Study
  Country: US (occurrence: US)
  Receive Date: 20140717
  Receipt Date: 20160229
  Transmission Date: 20160525
  Serious: Yes (Hospitalization, Other)
  Sender: FDA-Public Use
  Company Number: US-SA-2014SA042755

PATIENT
  Age: 58 Year
  Sex: Female

DRUGS (5)
  1. AUBAGIO [Suspect]
     Active Substance: TERIFLUNOMIDE
     Indication: MULTIPLE SCLEROSIS
     Route: 048
     Dates: start: 20140327
  2. AUBAGIO [Suspect]
     Active Substance: TERIFLUNOMIDE
     Indication: MULTIPLE SCLEROSIS
     Route: 048
     Dates: start: 201506, end: 20160102
  3. AMPYRA [Concomitant]
     Active Substance: DALFAMPRIDINE
     Dates: start: 20140610
  4. BETASERON [Concomitant]
     Active Substance: INTERFERON BETA-1B
     Indication: MULTIPLE SCLEROSIS
     Dates: start: 20100101, end: 20140325
  5. AUBAGIO [Suspect]
     Active Substance: TERIFLUNOMIDE
     Indication: MULTIPLE SCLEROSIS
     Route: 048
     Dates: start: 20140421, end: 201412

REACTIONS (33)
  - Infection [Recovered/Resolved]
  - Multiple sclerosis relapse [Recovering/Resolving]
  - Cold sweat [Unknown]
  - Pyrexia [Recovering/Resolving]
  - Lacrimation increased [Unknown]
  - Mobility decreased [Unknown]
  - Speech disorder [Recovering/Resolving]
  - Adjustment disorder [Unknown]
  - Hypertension [Unknown]
  - Feeding disorder [Unknown]
  - Pneumonia [Unknown]
  - Dehydration [Recovered/Resolved]
  - Photophobia [Unknown]
  - Tremor [Not Recovered/Not Resolved]
  - Malaise [Not Recovered/Not Resolved]
  - Influenza [Unknown]
  - Decreased appetite [Recovered/Resolved]
  - Unevaluable event [Unknown]
  - Somnolence [Unknown]
  - Headache [Not Recovered/Not Resolved]
  - Malaise [Recovered/Resolved]
  - Fall [Unknown]
  - Multiple allergies [Unknown]
  - Pallor [Unknown]
  - Fatigue [Unknown]
  - Dyspnoea [Unknown]
  - Dry eye [Unknown]
  - Gait disturbance [Recovering/Resolving]
  - Chills [Unknown]
  - Hyperhidrosis [Unknown]
  - Contusion [Unknown]
  - Rash generalised [Unknown]
  - Sleep disorder [Not Recovered/Not Resolved]

NARRATIVE: CASE EVENT DATE: 2014
